FAERS Safety Report 9032535 (Version 1)
Quarter: 2013Q1

REPORT INFORMATION
  Report Type: Spontaneous
  Country: GB (occurrence: None)
  Receive Date: 20130108
  Receipt Date: 20130108
  Transmission Date: 20140127
  Serious: Yes (Hospitalization, Disabling)
  Sender: FDA-Public Use
  Company Number: 2012AP004441

PATIENT
  Age: 92 Year
  Sex: Female

DRUGS (8)
  1. ALENDRONATE (ALENDRONATE SODIUM) [Suspect]
     Indication: PROPHYLAXIS
     Route: 048
     Dates: start: 20121130
  2. ALENDRONATE (ALENDRONATE SODIUM) [Suspect]
     Indication: BONE DISORDER
     Route: 048
     Dates: start: 20121130
  3. ANASTROZOLE (ANASTROZOLE) [Concomitant]
  4. VITAMIN D3 (COLECALCIFEROL) [Concomitant]
  5. CALCIUM (CALCIUM) [Concomitant]
  6. DALTEPARIN (DALTEPARIN) [Concomitant]
  7. DOCUSATE (DOCUSATE) [Concomitant]
  8. SENNA /00142201/ (SENNA ALEXANDRINA) [Concomitant]

REACTIONS (1)
  - Hallucinations, mixed [None]
